FAERS Safety Report 7290412-3 (Version None)
Quarter: 2011Q1

REPORT INFORMATION
  Report Type: 
  Country: None (occurrence: None)
  Receive Date: 20110214
  Receipt Date: 20110204
  Transmission Date: 20110831
  Serious: Yes (Other)
  Sender: FDA-Public Use
  Company Number: US-JNJFOC-20110202374

PATIENT
  Sex: Male
  Weight: 94.35 kg

DRUGS (9)
  1. POTASSIUM CHLORIDE [Concomitant]
     Route: 048
  2. LEVAQUIN [Suspect]
     Indication: LOWER RESPIRATORY TRACT INFECTION
     Route: 048
  3. ATROVENT [Concomitant]
     Indication: RESPIRATORY DISORDER
     Route: 065
  4. LASIX [Concomitant]
     Indication: SWELLING
     Route: 048
  5. ALBUTEROL [Concomitant]
     Indication: RESPIRATORY DISORDER
     Route: 065
  6. LISINOPRIL [Concomitant]
     Indication: BLOOD PRESSURE
     Route: 048
  7. FLOMAX [Concomitant]
     Indication: PROSTATIC DISORDER
     Route: 048
  8. ZOCOR [Concomitant]
     Indication: BLOOD CHOLESTEROL
     Route: 048
  9. OMEPRAZOLE [Concomitant]
     Indication: GASTRIC DISORDER
     Route: 048

REACTIONS (6)
  - HYPOAESTHESIA [None]
  - MUSCLE SPASMS [None]
  - BLOOD TRIGLYCERIDES INCREASED [None]
  - PAIN IN EXTREMITY [None]
  - ARTHROPATHY [None]
  - BLOOD CHOLESTEROL INCREASED [None]
